FAERS Safety Report 7407281-0 (Version None)
Quarter: 2011Q2

REPORT INFORMATION
  Report Type: 
  Country: None (occurrence: None)
  Receive Date: 20110411
  Receipt Date: 20110405
  Transmission Date: 20111010
  Serious: Yes (Death, Other)
  Sender: FDA-Public Use
  Company Number: PHHY2011JP28445

PATIENT
  Age: 74 Year
  Sex: Female
  Weight: 38 kg

DRUGS (12)
  1. EXJADE [Suspect]
     Indication: MYELODYSPLASTIC SYNDROME
     Dosage: 500 MG, DAILY
     Route: 048
     Dates: start: 20100831, end: 20101208
  2. LOXOPROFEN [Concomitant]
     Dosage: 180 MG, UNK
     Route: 048
     Dates: start: 20101111, end: 20101208
  3. HERBESSOR R [Concomitant]
     Dosage: 100 MG, UNK
     Route: 048
  4. GLAKAY [Concomitant]
     Dosage: 45 MG, UNK
     Route: 048
     Dates: start: 20060602, end: 20100901
  5. WARFARIN SODIUM [Concomitant]
     Dosage: 2 MG, UNK
     Route: 048
     Dates: start: 20100831, end: 20101208
  6. TAKEPRON [Concomitant]
     Dosage: 15 MG, UNK
     Route: 048
     Dates: start: 20100225, end: 20101208
  7. DESFERAL [Concomitant]
     Indication: IRON OVERLOAD
     Dosage: 1000 MG, UNK
     Route: 030
     Dates: start: 20100416, end: 20100827
  8. EXJADE [Suspect]
     Indication: IRON OVERLOAD
  9. GLIMICRON [Concomitant]
     Dosage: 80 MG, UNK
     Route: 048
     Dates: start: 20100705, end: 20100925
  10. PREDONINE [Concomitant]
     Dosage: 2.5 MG, UNK
     Route: 048
     Dates: start: 20060602, end: 20101208
  11. MAINTATE [Concomitant]
     Dosage: 1.25 MG, UNK
     Route: 048
     Dates: start: 20101117, end: 20101208
  12. RED BLOOD CELLS, LEUCOCYTE DEPLETED [Concomitant]
     Dosage: 2 UNITS EVERY 10 DAYS
     Dates: start: 20100906, end: 20101207

REACTIONS (3)
  - GENERAL PHYSICAL HEALTH DETERIORATION [None]
  - PALPITATIONS [None]
  - DEATH [None]
